FAERS Safety Report 7078566-5 (Version None)
Quarter: 2010Q4

REPORT INFORMATION
  Report Type: 
  Country: None (occurrence: None)
  Receive Date: 20101102
  Receipt Date: 20101029
  Transmission Date: 20110411
  Serious: Yes (Death)
  Sender: FDA-Public Use
  Company Number: US-BRISTOL-MYERS SQUIBB COMPANY-15349954

PATIENT
  Age: 58 Year
  Sex: Female

DRUGS (5)
  1. TRAZODONE HCL [Suspect]
  2. BUSPIRONE HCL [Suspect]
  3. FLUOXETINE [Suspect]
  4. ESCITALOPRAM OXALATE [Suspect]
  5. TEMAZEPAM [Suspect]

REACTIONS (2)
  - LONG QT SYNDROME [None]
  - TORSADE DE POINTES [None]
